FAERS Safety Report 9465870 (Version 4)
Quarter: 2013Q3

REPORT INFORMATION
  Report Type: Report from Study
  Country: JP (occurrence: JP)
  Receive Date: 20130820
  Receipt Date: 20130930
  Transmission Date: 20140515
  Serious: Yes (Death, Other)
  Sender: FDA-Public Use
  Company Number: JP-JNJFOC-20130807568

PATIENT
  Age: 62 Year
  Sex: Female

DRUGS (21)
  1. ONE DURO [Suspect]
     Indication: CANCER PAIN
     Route: 062
     Dates: start: 20130326, end: 20130405
  2. AMPICILLIN SODIUM W/SULBACTAM SODIUM [Suspect]
     Indication: BRONCHITIS
     Route: 042
     Dates: start: 20130406, end: 20130414
  3. RISPERDAL [Concomitant]
     Indication: DELIRIUM
     Route: 048
     Dates: start: 20130412, end: 20130505
  4. ALLOID G [Concomitant]
     Indication: GASTRITIS
     Route: 048
     Dates: end: 20130328
  5. PIPERACILLIN SODIUM W/TAZOBACTAM [Concomitant]
     Indication: BRONCHITIS
     Route: 042
     Dates: end: 20130326
  6. GANCICLOVIR [Concomitant]
     Indication: CYTOMEGALOVIRUS INFECTION
     Route: 041
     Dates: end: 20130326
  7. LANSOPRAZOLE [Concomitant]
     Indication: PROPHYLAXIS
     Route: 048
     Dates: start: 20130326, end: 20130423
  8. NEXIUM [Concomitant]
     Indication: PROPHYLAXIS
     Route: 048
     Dates: start: 20130424, end: 20130505
  9. BARACLUDE [Concomitant]
     Indication: CHRONIC HEPATITIS B
     Route: 048
     Dates: end: 20130505
  10. VALGANCICLOVIR HYDROCHLORIDE [Concomitant]
     Indication: CYTOMEGALOVIRUS INFECTION
     Route: 048
     Dates: start: 20130327, end: 20130505
  11. ADEFURONIC [Concomitant]
     Indication: CANCER PAIN
     Route: 054
     Dates: end: 20130505
  12. ZOLPIDEM TARTRATE [Concomitant]
     Indication: INSOMNIA
     Route: 048
     Dates: start: 20130327, end: 20130505
  13. LOCOID [Concomitant]
     Indication: RADIATION SKIN INJURY
     Route: 061
     Dates: start: 20130401, end: 20130505
  14. NEUTROGIN [Concomitant]
     Indication: NEUTROPENIA
     Route: 065
     Dates: start: 20130410, end: 20130422
  15. LOXOPROFEN [Concomitant]
     Indication: CANCER PAIN
     Route: 048
     Dates: start: 20130326, end: 20130505
  16. CALONAL [Concomitant]
     Indication: BRONCHITIS
     Route: 048
     Dates: start: 20130430, end: 20130505
  17. OXYCODONE HYDROCHLORIDE HYDRATE [Concomitant]
     Indication: CANCER PAIN
     Route: 048
     Dates: start: 20130329, end: 20130402
  18. OXYCODONE HYDROCHLORIDE HYDRATE [Concomitant]
     Indication: CANCER PAIN
     Route: 048
     Dates: start: 20130403, end: 20130404
  19. OXYCODONE HYDROCHLORIDE HYDRATE [Concomitant]
     Indication: CANCER PAIN
     Route: 048
     Dates: start: 20130405, end: 20130405
  20. OXYCODONE HYDROCHLORIDE HYDRATE [Concomitant]
     Indication: CANCER PAIN
     Route: 048
     Dates: start: 20130406, end: 20130406
  21. OXYCODONE HYDROCHLORIDE HYDRATE [Concomitant]
     Indication: CANCER PAIN
     Route: 048
     Dates: start: 20130408, end: 20130408

REACTIONS (7)
  - Haematopoietic neoplasm [Fatal]
  - Neutropenia [Recovered/Resolved]
  - Delirium [Not Recovered/Not Resolved]
  - Oral candidiasis [Recovered/Resolved]
  - Toxic skin eruption [Recovered/Resolved]
  - Oral herpes [Recovered/Resolved]
  - Bronchitis [Not Recovered/Not Resolved]
